FAERS Safety Report 5595247-5 (Version None)
Quarter: 2008Q1

REPORT INFORMATION
  Report Type: 
  Country: None (occurrence: None)
  Receive Date: 20080117
  Receipt Date: 20080109
  Transmission Date: 20080703
  Serious: Yes (Death, Other)
  Sender: FDA-Public Use
  Company Number: JP-PFIZER INC-2007102652

PATIENT
  Sex: Male
  Weight: 32.8 kg

DRUGS (16)
  1. ZYVOX [Suspect]
     Indication: PNEUMONIA STAPHYLOCOCCAL
     Route: 042
     Dates: start: 20071109, end: 20071112
  2. FINIBAX [Suspect]
     Indication: PNEUMONIA
     Dosage: DAILY DOSE:.75GRAM
     Route: 042
     Dates: start: 20071107, end: 20071112
  3. TARGOCID [Suspect]
     Dosage: DAILY DOSE:400MG
     Route: 042
     Dates: start: 20071114, end: 20071116
  4. FOY [Concomitant]
     Route: 042
     Dates: start: 20071109, end: 20071115
  5. ANTITHROMBIN III [Concomitant]
     Route: 042
     Dates: start: 20071109, end: 20071111
  6. VANCOMYCIN [Concomitant]
     Dosage: DAILY DOSE:1000MG
     Route: 042
  7. URSO 250 [Concomitant]
     Route: 048
     Dates: start: 20070916, end: 20071108
  8. FOIPAN [Concomitant]
     Route: 048
     Dates: start: 20070916, end: 20071108
  9. AMINO ACIDS/CARBOHYDRATES/MINERALS/VITAMINS, [Concomitant]
     Route: 042
     Dates: start: 20071109, end: 20071112
  10. AMINO ACIDS/CARBOHYDRATES/MINERALS/VITAMINS, [Concomitant]
     Route: 042
     Dates: start: 20071113, end: 20071116
  11. KIDMIN [Concomitant]
     Route: 042
     Dates: start: 20071109, end: 20071116
  12. ELEMENMIC [Concomitant]
     Route: 042
     Dates: start: 20071109, end: 20071112
  13. ASPARA K [Concomitant]
     Route: 042
     Dates: start: 20071109, end: 20071112
  14. HEPARIN [Concomitant]
     Route: 042
     Dates: start: 20071109, end: 20071112
  15. THYRADIN S [Concomitant]
     Route: 048
  16. TAKEPRON [Concomitant]
     Route: 048

REACTIONS (4)
  - ACUTE RESPIRATORY FAILURE [None]
  - ANAEMIA [None]
  - HEPATIC FUNCTION ABNORMAL [None]
  - THROMBOCYTOPENIA [None]
